FAERS Safety Report 16991411 (Version 1)
Quarter: 2019Q4

REPORT INFORMATION
  Report Type: Spontaneous
  Country: CA (occurrence: CA)
  Receive Date: 20191104
  Receipt Date: 20191104
  Transmission Date: 20200122
  Serious: Yes (Other)
  Sender: FDA-Public Use
  Company Number: CA-ENDO PHARMACEUTICALS INC-2019-109149

PATIENT

DRUGS (2)
  1. ETOMIDATE. [Suspect]
     Active Substance: ETOMIDATE
     Indication: WADA TEST
     Dosage: 0.03-0.04 MG/KG BOLUS DOSE OF UNDILUTED ETOMIDATE TWICE
     Route: 013
  2. LIDOCAINE. [Concomitant]
     Active Substance: LIDOCAINE
     Indication: LOCAL ANAESTHESIA

REACTIONS (2)
  - Off label use [Unknown]
  - Seizure [Unknown]
